FAERS Safety Report 9352599 (Version 4)
Quarter: 2013Q3

REPORT INFORMATION
  Report Type: Report from Study
  Country: US (occurrence: US)
  Receive Date: 20130618
  Receipt Date: 20130917
  Transmission Date: 20140515
  Serious: Yes (Other)
  Sender: FDA-Public Use
  Company Number: US-ROCHE-1235164

PATIENT
  Age: 14 Year
  Sex: Male

DRUGS (3)
  1. NUTROPIN AQ [Suspect]
     Indication: GROWTH HORMONE DEFICIENCY
     Dosage: THERAPY START DATE: MAY/2013
     Route: 058
  2. NUTROPIN AQ [Suspect]
     Dosage: 25/APR/2013
     Route: 058
  3. DDAVP [Concomitant]
     Indication: DIABETES MELLITUS
     Route: 048
     Dates: start: 20130119

REACTIONS (10)
  - Syncope [Recovered/Resolved with Sequelae]
  - Dyspnoea exertional [Recovered/Resolved with Sequelae]
  - Asthenia [Not Recovered/Not Resolved]
  - Fatigue [Not Recovered/Not Resolved]
  - Arthralgia [Not Recovered/Not Resolved]
  - Loss of consciousness [Recovered/Resolved]
  - Painful respiration [Unknown]
  - Dehydration [Unknown]
  - Anxiety [Not Recovered/Not Resolved]
  - Insomnia [Not Recovered/Not Resolved]
